FAERS Safety Report 4583446-0 (Version None)
Quarter: 2005Q1

REPORT INFORMATION
  Report Type: 
  Country: None (occurrence: None)
  Receive Date: 20050211
  Receipt Date: 20050204
  Transmission Date: 20050727
  Serious: Yes (Other)
  Sender: FDA-Public Use
  Company Number: K200500190

PATIENT
  Age: 68 Year
  Sex: Male

DRUGS (2)
  1. ALTACE [Suspect]
     Indication: MICROALBUMINURIA
     Dosage: SEE IMAGE
     Route: 048
  2. . [Concomitant]

REACTIONS (2)
  - ATRIOVENTRICULAR BLOCK [None]
  - HEART RATE DECREASED [None]
